FAERS Safety Report 5525633-0 (Version None)
Quarter: 2007Q4

REPORT INFORMATION
  Report Type: 
  Country: None (occurrence: None)
  Receive Date: 20071126
  Receipt Date: 20071113
  Transmission Date: 20080405
  Serious: Yes (Life-Threatening)
  Sender: FDA-Public Use
  Company Number: JP-ROCHE-510070

PATIENT
  Age: 63 Year
  Sex: Male

DRUGS (9)
  1. VALGANCICLOVIR HCL [Suspect]
     Indication: CYTOMEGALOVIRUS ANTIGEN POSITIVE
     Route: 048
     Dates: start: 20070612, end: 20070615
  2. BACTRIM [Suspect]
     Dosage: OTHER IDICATION REPORTED: PROPHYLAXIS. STRENGTH OF SULFAMETHOXAZOLE/TRIMETHOPRIM: 800/160 MG. PATIE+
     Route: 048
     Dates: start: 20070601, end: 20070617
  3. BACTRIM [Suspect]
     Dosage: LOWERED DOSAGE IN RESPONSE TO HYPONATRAEMIA.
     Route: 048
     Dates: start: 20070618
  4. CLARITHROMYCIN [Suspect]
     Indication: OPPORTUNISTIC INFECTION PROPHYLAXIS
     Route: 048
     Dates: start: 20070601
  5. CHEMOTHERAPY DRUG NOS [Suspect]
     Indication: ORAL CANDIDIASIS
     Dosage: DRUF REPORTED AS OTHER CHEMOTHERAPEUTICS.
     Route: 048
     Dates: start: 20070531, end: 20070614
  6. PREDONINE [Concomitant]
     Dosage: TAPERED DOSE
     Route: 048
     Dates: start: 20070531, end: 20070615
  7. UNSPECIFIED DRUG [Concomitant]
     Dosage: ADRENAL HORMONE PREPARATIONS.
  8. ITRACONAZOLE [Concomitant]
     Dates: start: 20070531, end: 20070614
  9. FLUCONAZOLE [Concomitant]
     Dates: start: 20070615

REACTIONS (2)
  - HYPONATRAEMIA [None]
  - INAPPROPRIATE ANTIDIURETIC HORMONE SECRETION [None]
